FAERS Safety Report 9153864 (Version 1)
Quarter: 2013Q1

REPORT INFORMATION
  Report Type: Spontaneous
  Country: PT (occurrence: None)
  Receive Date: 20130207
  Receipt Date: 20130207
  Transmission Date: 20140127
  Serious: Yes (Other)
  Sender: FDA-Public Use
  Company Number: AUR-APL-2013-01021

PATIENT
  Age: 41 Year
  Sex: Female

DRUGS (2)
  1. RISPERIDONE (RISPERIDONE) [Suspect]
  2. VALPROATE SEMISODIUM [Suspect]

REACTIONS (7)
  - Encephalopathy [None]
  - Dysarthria [None]
  - Ammonia increased [None]
  - Alanine aminotransferase increased [None]
  - Aspartate aminotransferase increased [None]
  - Blood folate decreased [None]
  - Drug interaction [None]
